FAERS Safety Report 25374823 (Version 1)
Quarter: 2025Q2

REPORT INFORMATION
  Report Type: Spontaneous
  Country: US (occurrence: None)
  Receive Date: 20250529
  Receipt Date: 20250529
  Transmission Date: 20250717
  Serious: Yes (Disabling)
  Sender: FDA-CTU
  Company Number: None

PATIENT
  Sex: Female
  Weight: 66.6 kg

DRUGS (6)
  1. KIRKLAND SIGNATURE ALLER TEC ALLERGY [Suspect]
     Active Substance: CETIRIZINE HYDROCHLORIDE
     Indication: Seasonal allergy
     Dosage: OTHER QUANTITY : 1 TABLET(S);?FREQUENCY : DAILY;?
  2. TRAZODONE [Concomitant]
     Active Substance: TRAZODONE HYDROCHLORIDE
  3. WELLBUTRIN [Concomitant]
     Active Substance: BUPROPION HYDROCHLORIDE
  4. ESCITALOPRAM [Concomitant]
     Active Substance: ESCITALOPRAM OXALATE
  5. ROSUVASTATIN [Concomitant]
     Active Substance: ROSUVASTATIN
  6. VITAMIN D [Concomitant]
     Active Substance: VITAMIN D NOS

REACTIONS (4)
  - Pruritus [None]
  - Haemorrhage [None]
  - Withdrawal syndrome [None]
  - Loss of personal independence in daily activities [None]
